FAERS Safety Report 6340680-7 (Version None)
Quarter: 2009Q3

REPORT INFORMATION
  Report Type: 
  Country: None (occurrence: None)
  Receive Date: 20090904
  Receipt Date: 20090821
  Transmission Date: 20100115
  Serious: Yes (Other)
  Sender: FDA-Public Use
  Company Number: US-AVENTIS-200917728US

PATIENT
  Age: 54 Year
  Sex: Male
  Weight: 75 kg

DRUGS (5)
  1. DIABETA [Suspect]
     Dosage: DOSE: UNKNOWN
     Dates: start: 20030101, end: 20070101
  2. DIABETA [Suspect]
     Route: 048
     Dates: start: 20071101
  3. HUMULIN 70/30 [Suspect]
     Dosage: DOSE: UNK
     Dates: start: 20050101, end: 20070101
  4. METFORMIN HCL [Suspect]
     Route: 048
     Dates: start: 20070101
  5. PREDNISONE TAB [Suspect]
     Indication: PSORIASIS
     Dosage: DOSE: UNK
     Dates: start: 20050101

REACTIONS (6)
  - BLOOD GLUCOSE INCREASED [None]
  - ERYTHEMA [None]
  - GLUCOSE URINE PRESENT [None]
  - OEDEMA PERIPHERAL [None]
  - PSORIASIS [None]
  - WEIGHT DECREASED [None]
